FAERS Safety Report 24267097 (Version 1)
Quarter: 2024Q3

REPORT INFORMATION
  Report Type: Report from Study
  Country: US (occurrence: US)
  Receive Date: 20240830
  Receipt Date: 20240830
  Transmission Date: 20241016
  Serious: Yes (Hospitalization)
  Sender: AMGEN
  Company Number: US-AMGEN-USASL2024165545

PATIENT
  Age: 69 Year
  Sex: Male

DRUGS (4)
  1. IMDELLTRA [Suspect]
     Active Substance: TARLATAMAB-DLLE
     Indication: Neoplasm malignant
     Dosage: UNK, 1ST DOSE
     Route: 065
  2. IMDELLTRA [Suspect]
     Active Substance: TARLATAMAB-DLLE
     Indication: Metastases to biliary tract
  3. IMDELLTRA [Suspect]
     Active Substance: TARLATAMAB-DLLE
     Indication: Metastases to liver
  4. IMDELLTRA [Suspect]
     Active Substance: TARLATAMAB-DLLE
     Indication: Off label use

REACTIONS (2)
  - Adverse reaction [Unknown]
  - Off label use [Unknown]
